FAERS Safety Report 22089224 (Version 2)
Quarter: 2023Q2

REPORT INFORMATION
  Report Type: Report from Study
  Country: IT (occurrence: IT)
  Receive Date: 20230313
  Receipt Date: 20230622
  Transmission Date: 20230722
  Serious: Yes (Death, Life-Threatening, Hospitalization, Disabling, Other)
  Sender: FDA-Public Use
  Company Number: IT-BRISTOL-MYERS SQUIBB COMPANY-2022-115191

PATIENT
  Age: 59 Year
  Sex: Male
  Weight: 90 kg

DRUGS (12)
  1. AZACITIDINE [Suspect]
     Active Substance: AZACITIDINE
     Indication: Thrombocytopenia
     Dosage: 150 MILLIGRAM/SQ. METER (SEVEN TIMES A MONTH)
     Route: 058
     Dates: start: 20220208
  2. AZACITIDINE [Suspect]
     Active Substance: AZACITIDINE
     Indication: Cytopenia
  3. ERYTHROPOIETIN [Suspect]
     Active Substance: ERYTHROPOIETIN
     Indication: Anaemia
     Dosage: 40000 INTERNATIONAL UNIT, QW
     Route: 058
     Dates: start: 20210506
  4. VENLAFAXINE HYDROCHLORIDE [Concomitant]
     Active Substance: VENLAFAXINE HYDROCHLORIDE
     Indication: Depression
     Dosage: 75 MILLIGRAM, QD
     Route: 048
     Dates: start: 20220520
  5. LEUCOVORIN CALCIUM [Concomitant]
     Active Substance: LEUCOVORIN CALCIUM
     Indication: Prophylaxis
     Dosage: 15 MILLIGRAM, QD
     Route: 048
     Dates: start: 20220520
  6. DOXAZOSIN [Concomitant]
     Active Substance: DOXAZOSIN MESYLATE
     Indication: Hypertension
     Dosage: 2 MILLIGRAM, QD
     Route: 048
     Dates: start: 20201203
  7. TRAZODONE [Concomitant]
     Active Substance: TRAZODONE HYDROCHLORIDE
     Indication: Depression
     Dosage: 60 MILLIGRAM, QD
     Route: 048
     Dates: start: 20220520
  8. MOVICOL [Concomitant]
     Active Substance: POLYETHYLENE GLYCOL 3350\POTASSIUM CHLORIDE\SODIUM BICARBONATE\SODIUM CHLORIDE
     Indication: Constipation
     Dosage: 13.8 MILLIGRAM, QD
     Route: 048
  9. Daflon [Concomitant]
     Indication: Analgesic therapy
     Dosage: 500 MILLIGRAM, BID
     Route: 048
     Dates: start: 20220520
  10. LEVETIRACETAM [Concomitant]
     Active Substance: LEVETIRACETAM
     Indication: Epilepsy
     Dosage: 500 MILLIGRAM, QID
     Route: 048
     Dates: start: 20220520
  11. LACOSAMIDE [Concomitant]
     Active Substance: LACOSAMIDE
     Indication: Epilepsy
     Dosage: 150 MILLIGRAM, QD
     Route: 048
     Dates: start: 20210430
  12. DIAZEPAM [Concomitant]
     Active Substance: DIAZEPAM
     Indication: Anxiety
     Dosage: 20 MILLILITER, BID
     Route: 048
     Dates: start: 20220520

REACTIONS (18)
  - Haemorrhage intracranial [Fatal]
  - Cardio-respiratory arrest [Fatal]
  - Coma [Fatal]
  - Partial seizures [Unknown]
  - Concussion [Unknown]
  - Fall [Not Recovered/Not Resolved]
  - Seizure [Unknown]
  - Head injury [Recovered/Resolved]
  - Frontotemporal dementia [Unknown]
  - Epilepsy [Recovered/Resolved]
  - Eye injury [Recovered/Resolved with Sequelae]
  - Burns third degree [Recovered/Resolved with Sequelae]
  - Executive dysfunction [Unknown]
  - Apathy [Unknown]
  - Thermal burn [Recovered/Resolved with Sequelae]
  - Neutrophil count decreased [Unknown]
  - Platelet count decreased [Unknown]
  - Off label use [Unknown]

NARRATIVE: CASE EVENT DATE: 20210506
